FAERS Safety Report 11529083 (Version 2)
Quarter: 2015Q4

REPORT INFORMATION
  Report Type: Report from Study
  Country: DE (occurrence: DE)
  Receive Date: 20150921
  Receipt Date: 20151008
  Transmission Date: 20160304
  Serious: Yes (Hospitalization)
  Sender: FDA-Public Use
  Company Number: DE-ROCHE-1635457

PATIENT
  Age: 86 Year
  Sex: Female
  Weight: 75 kg

DRUGS (19)
  1. RANIBIZUMAB [Suspect]
     Active Substance: RANIBIZUMAB
     Route: 050
     Dates: start: 20150309
  2. DELIX (GERMANY) [Concomitant]
  3. GLIMEPIRIDE. [Concomitant]
     Active Substance: GLIMEPIRIDE
  4. AMLODIPINE [Concomitant]
     Active Substance: AMLODIPINE BESYLATE
  5. CEFUROXIME. [Concomitant]
     Active Substance: CEFUROXIME
  6. METFORMIN [Concomitant]
     Active Substance: METFORMIN HYDROCHLORIDE
  7. METAMIZOLE [Concomitant]
     Active Substance: METAMIZOLE
  8. TOREM [Concomitant]
     Active Substance: TORSEMIDE
  9. AMLODIPINE [Concomitant]
     Active Substance: AMLODIPINE BESYLATE
  10. RANIBIZUMAB [Suspect]
     Active Substance: RANIBIZUMAB
     Indication: VISUAL IMPAIRMENT
     Dosage: LEFT EYE
     Route: 050
     Dates: start: 20140729
  11. HUMALOG [Concomitant]
     Active Substance: INSULIN LISPRO
  12. FERROUS GLYCINE SULFATE [Concomitant]
     Active Substance: FERROUS SULFATE\GLYCINE
  13. PROTAPHANE [Concomitant]
     Active Substance: INSULIN HUMAN
  14. SORTIS [Concomitant]
     Active Substance: ATORVASTATIN
  15. NEBIVOLOL. [Concomitant]
     Active Substance: NEBIVOLOL
  16. CATAPRES [Concomitant]
     Active Substance: CLONIDINE HYDROCHLORIDE
  17. CAPTOPRIL. [Concomitant]
     Active Substance: CAPTOPRIL
  18. DOXAZOSIN MESILATE [Concomitant]
     Active Substance: DOXAZOSIN MESYLATE
  19. INSULIN BASAL [Concomitant]
     Active Substance: INSULIN NOS

REACTIONS (2)
  - Acute myocardial infarction [Recovered/Resolved]
  - Iron deficiency anaemia [Recovered/Resolved]

NARRATIVE: CASE EVENT DATE: 20150702
